FAERS Safety Report 4901201-6 (Version None)
Quarter: 2006Q1

REPORT INFORMATION
  Report Type: 
  Country: None (occurrence: None)
  Receive Date: 20060201
  Receipt Date: 20060126
  Transmission Date: 20060701
  Serious: Yes (Death, Hospitalization)
  Sender: FDA-Public Use
  Company Number: 200610289GDS

PATIENT
  Age: 68 Year
  Sex: Female

DRUGS (2)
  1. CIPROXAN (CIPROFLOXACIN) [Suspect]
     Indication: DRUG THERAPY
     Dosage: ORAL
     Route: 048
     Dates: start: 20060111
  2. DILANTIN [Concomitant]

REACTIONS (1)
  - STEVENS-JOHNSON SYNDROME [None]
